FAERS Safety Report 8658120 (Version 2)
Quarter: 2012Q4

REPORT INFORMATION
  Report Type: 
  Country: AU (occurrence: AU)
  Receive Date: 20120710
  Receipt Date: 20121019
  Transmission Date: 20130627
  Serious: Yes (Other)
  Sender: FDA-Public Use
  Company Number: AU-AMGEN-AUSSP2012039892

PATIENT
  Age: 50 Year

DRUGS (4)
  1. XGEVA [Suspect]
     Indication: BREAST CANCER METASTATIC
     Dosage: UNK
     Dates: end: 20120515
  2. EPIRUBICIN [Concomitant]
     Indication: BREAST CANCER
     Dosage: UNK
  3. EPIRUBICIN [Concomitant]
     Indication: BREAST CANCER METASTATIC
  4. EPIRUBICIN HYDROCHLORIDE [Concomitant]

REACTIONS (1)
  - Hypercalcaemia [Unknown]
